FAERS Safety Report 9726752 (Version 1)
Quarter: 2013Q4

REPORT INFORMATION
  Report Type: Spontaneous
  Country: DE (occurrence: None)
  Receive Date: 20131129
  Receipt Date: 20131129
  Transmission Date: 20140711
  Serious: Yes (Hospitalization)
  Sender: FDA-Public Use
  Company Number: 2013-1613

PATIENT
  Age: 41 Year
  Sex: Male

DRUGS (6)
  1. CARFILZOMIB [Suspect]
     Indication: PLASMA CELL MYELOMA
     Dosage: 103.04 MG, DAYS 1, 2, 8, 9, 15, 16 EVERY 28 DAYS
     Route: 042
     Dates: start: 20130826, end: 20130826
  2. DEXAMETHASONE [Suspect]
     Indication: PLASMA CELL MYELOMA
     Dosage: 20 MG, DAYS 1, 2, 8, 9, 15, 16, 22, 23 Q 28 DAYS
     Route: 048
     Dates: start: 20130826, end: 20130930
  3. ACICLOVIR (ACICLOVIR) (ACICLOVIR) [Concomitant]
  4. PANTOPRAZOL (PANTOPRAZOLE SODIUM SESQUIHYDRATE) (PATOPRAZOLE SODIUM SESQUIHYDRATE) [Concomitant]
  5. NOVALGIN (CAFFEINE, PARACETAMOL, PROPYPHENAZONE) (CAFFEINE, PARACETAMOL, PROPYPHENAZONE) [Concomitant]
  6. RAMIPRIL (RAMIPRIL) (RAMIPRIL) [Concomitant]

REACTIONS (4)
  - Nephrosclerosis [None]
  - Renal tubular atrophy [None]
  - Kidney fibrosis [None]
  - Albuminuria [None]
